FAERS Safety Report 17815994 (Version 2)
Quarter: 2020Q2

REPORT INFORMATION
  Report Type: Report from Study
  Country: DE (occurrence: DE)
  Receive Date: 20200522
  Receipt Date: 20200526
  Transmission Date: 20200714
  Serious: No
  Sender: FDA-Public Use
  Company Number: DE-ROCHE-2602189

PATIENT
  Age: 46 Year
  Sex: Female
  Weight: 115 kg

DRUGS (18)
  1. CORTISONE [Suspect]
     Active Substance: CORTISONE
     Indication: COUGH
     Route: 048
  2. OCRELIZUMAB. [Suspect]
     Active Substance: OCRELIZUMAB
     Indication: MULTIPLE SCLEROSIS
     Route: 042
     Dates: start: 20191024
  3. DULOXETINE. [Concomitant]
     Active Substance: DULOXETINE
     Indication: DEPRESSION
     Route: 048
     Dates: start: 20161215
  4. HCT BETA [Concomitant]
     Active Substance: HYDROCHLOROTHIAZIDE
     Indication: HYPERTENSION
     Route: 048
  5. FOSTER [Concomitant]
     Active Substance: BECLOMETHASONE\FORMOTEROL
     Indication: BRONCHITIS
     Route: 055
     Dates: start: 20200313
  6. OMEPRAZOL [OMEPRAZOLE] [Concomitant]
     Active Substance: OMEPRAZOLE
     Indication: GASTROINTESTINAL DISORDER PROPHYLAXIS
     Route: 048
     Dates: start: 20131209
  7. HISTAKUT [Concomitant]
     Active Substance: DIMETHINDENE MALEATE
     Indication: PREMEDICATION
     Route: 042
     Dates: start: 20191024
  8. IBUPROFEN. [Concomitant]
     Active Substance: IBUPROFEN
     Indication: PAIN
     Dosage: DEFINITION OF THE INTERVAL: AS REQUIRED
     Route: 048
  9. METOPROLOL SUCCINATE. [Concomitant]
     Active Substance: METOPROLOL SUCCINATE
     Indication: HYPERTENSION
     Route: 048
     Dates: start: 201807
  10. OCRELIZUMAB. [Suspect]
     Active Substance: OCRELIZUMAB
     Route: 042
     Dates: start: 20190509, end: 20190523
  11. DOXICICLIN [Concomitant]
     Indication: BRONCHITIS
     Route: 048
     Dates: start: 20200313, end: 20200319
  12. BETAHISTINE [Concomitant]
     Active Substance: BETAHISTINE
     Indication: DIZZINESS
     Route: 048
     Dates: start: 20151109
  13. URBASON [METHYLPREDNISOLONE] [Concomitant]
     Active Substance: METHYLPREDNISOLONE
     Indication: PREMEDICATION
     Route: 042
     Dates: start: 20191024
  14. DEKRISTOL [Concomitant]
     Active Substance: CHOLECALCIFEROL
     Indication: VITAMIN D DEFICIENCY
     Route: 048
     Dates: start: 20170124
  15. PREDNISOLON [PREDNISOLONE] [Concomitant]
     Active Substance: PREDNISOLONE
     Indication: BRONCHITIS
     Route: 048
     Dates: start: 20200313, end: 20200318
  16. NOVALGIN (METAMIZOLE SODIUM) [Concomitant]
     Active Substance: METAMIZOLE SODIUM
     Indication: PAIN
     Dosage: DEFINITION OF THE INTERVAL: AS REQUIRED
     Route: 048
  17. URBASON [METHYLPREDNISOLONE] [Concomitant]
     Active Substance: METHYLPREDNISOLONE
     Indication: PREMEDICATION
     Route: 042
     Dates: start: 20190509, end: 20190523
  18. HISTAKUT [Concomitant]
     Active Substance: DIMETHINDENE MALEATE
     Indication: PREMEDICATION
     Route: 042
     Dates: start: 20190509, end: 20190513

REACTIONS (1)
  - Oral candidiasis [Not Recovered/Not Resolved]

NARRATIVE: CASE EVENT DATE: 20200506
